FAERS Safety Report 4659951-5 (Version None)
Quarter: 2005Q2

REPORT INFORMATION
  Report Type: 
  Country: None (occurrence: None)
  Receive Date: 20050510
  Receipt Date: 20050427
  Transmission Date: 20051028
  Serious: Yes (Other)
  Sender: FDA-Public Use
  Company Number: 2005066264

PATIENT
  Age: 68 Year
  Sex: Male
  Weight: 73.9 kg

DRUGS (19)
  1. DILANTIN [Suspect]
     Indication: CONVULSION
     Dosage: 390 MG (130 MG, 3 IN 1 D), ORAL
     Route: 048
  2. FOLIC ACID [Suspect]
     Indication: ILL-DEFINED DISORDER
     Dosage: ORAL
     Route: 048
  3. ENALAPRIL MALEATE [Concomitant]
  4. FERROUS SULFATE TAB [Concomitant]
  5. ACETAMINOPHEN [Concomitant]
  6. DOXAZOSIN (DOXAZOSIN) [Concomitant]
  7. SALBUTAMOL (SALBUTAMOL) [Concomitant]
  8. RISPERDAL [Concomitant]
  9. OLANZAPINE (OLANZAPINE) [Concomitant]
  10. PANTOPRAZOLE (PANTOPRAZOLE) [Concomitant]
  11. MAALOX                (ALUMINIUM HYDROXIDE GEL, MAGNESIUM HYDROXIDE) [Concomitant]
  12. METAMUCIL               (GLUCOSE MONOHYDRATE, ISPHAGHULA HUSK) [Concomitant]
  13. SORBITOL (SORBITOL) [Concomitant]
  14. BUSPIRONE HCL [Concomitant]
  15. ZOLPIDEM TARTRATE [Concomitant]
  16. LORAZEPAM [Concomitant]
  17. ASPIRIN [Concomitant]
  18. FENTANYL [Concomitant]
  19. LEVOFLOXACIN [Concomitant]

REACTIONS (2)
  - ANTICONVULSANT DRUG LEVEL DECREASED [None]
  - CONVULSION [None]
